FAERS Safety Report 8987761 (Version 3)
Quarter: 2013Q1

REPORT INFORMATION
  Report Type: Spontaneous
  Country: JP (occurrence: JP)
  Receive Date: 20121227
  Receipt Date: 20130130
  Transmission Date: 20140127
  Serious: Yes (Hospitalization)
  Sender: FDA-Public Use
  Company Number: JP-PFIZER INC-2012326399

PATIENT
  Age: 76 Year
  Sex: Male

DRUGS (10)
  1. SEIBULE [Suspect]
     Indication: TYPE 2 DIABETES MELLITUS
     Dosage: 50 MG, 1X/DAY
     Route: 048
     Dates: start: 20121111, end: 20121203
  2. VILDAGLIPTIN [Suspect]
     Indication: TYPE 2 DIABETES MELLITUS
     Dosage: 50 MG, 1X/DAY
     Route: 048
     Dates: start: 20121121, end: 20121203
  3. MEDET [Concomitant]
     Dosage: UNK
     Dates: end: 20121128
  4. AMARYL [Concomitant]
     Dosage: UNK
     Dates: end: 20121111
  5. PLAVIX [Concomitant]
     Dosage: UNK
     Dates: start: 20071213
  6. THYRADIN S [Concomitant]
     Dosage: UNK
  7. MICARDIS [Concomitant]
     Dosage: UNK
     Dates: start: 20070703
  8. AMLODIN [Concomitant]
     Dosage: UNK
     Dates: start: 20090331
  9. VASOLAN [Concomitant]
     Dosage: UNK
  10. SPIRIVA [Concomitant]
     Dosage: UNK
     Dates: start: 20090824

REACTIONS (4)
  - Cardiac failure acute [Recovering/Resolving]
  - Generalised oedema [Recovering/Resolving]
  - Hepatic function abnormal [Recovering/Resolving]
  - Abdominal distension [Unknown]
